FAERS Safety Report 25412140 (Version 2)
Quarter: 2025Q4

REPORT INFORMATION
  Report Type: Spontaneous
  Country: EU (occurrence: EU)
  Receive Date: 20250609
  Receipt Date: 20251031
  Transmission Date: 20260117
  Serious: Yes (Life-Threatening, Hospitalization, Other)
  Sender: CELLTRION
  Company Number: EU-PFIZER INC-PV202400163375

PATIENT

DRUGS (67)
  1. RITUXIMAB [Suspect]
     Active Substance: RITUXIMAB
     Indication: Mantle cell lymphoma stage IV
     Dosage: CYCLIC (EVERY 21 DAYS); FIRST CYCLE
     Dates: start: 20230919
  2. RITUXIMAB [Suspect]
     Active Substance: RITUXIMAB
     Indication: Leukaemic lymphoma
     Dosage: CYCLIC (EVERY 21 DAYS); SECOND CYCLE
     Route: 065
     Dates: start: 20231010
  3. RITUXIMAB [Suspect]
     Active Substance: RITUXIMAB
     Indication: Leukaemia
     Dosage: CYCLIC (EVERY 21 DAYS)
  4. RITUXIMAB [Suspect]
     Active Substance: RITUXIMAB
     Dosage: CYCLIC (EVERY 21 DAYS)
  5. RITUXIMAB [Suspect]
     Active Substance: RITUXIMAB
     Dosage: CYCLIC (EVERY 21 DAYS)
  6. RITUXIMAB [Suspect]
     Active Substance: RITUXIMAB
     Dosage: LAST CYCLE RCHOP IMMUNOCHEMOTHERAPY (6 CYCLES OF RCHOP IMMUNOCHEMOTHERAPY AT
     Route: 065
     Dates: start: 20240102, end: 20240102
  7. RITUXIMAB [Suspect]
     Active Substance: RITUXIMAB
     Dosage: R-CHOP IMMUNOCHEMOTHERAPY
     Route: 065
     Dates: start: 20230919, end: 20240102
  8. RITUXIMAB [Suspect]
     Active Substance: RITUXIMAB
     Dosage: SECOND CYCLE OF R-CHOP IMMUNOCHEMOTHERAPY
     Route: 065
     Dates: start: 20231010, end: 20240102
  9. CYCLOPHOSPHAMIDE\DOXORUBICIN\PREDNISONE\VINCRISTINE [Suspect]
     Active Substance: CYCLOPHOSPHAMIDE\DOXORUBICIN\PREDNISONE\VINCRISTINE
     Indication: Mantle cell lymphoma stage IV
     Dosage: CYCLIC (EVERY 21 DAYS)
     Dates: start: 20230919
  10. CYCLOPHOSPHAMIDE\DOXORUBICIN\PREDNISONE\VINCRISTINE [Suspect]
     Active Substance: CYCLOPHOSPHAMIDE\DOXORUBICIN\PREDNISONE\VINCRISTINE
     Dosage: CYCLIC (EVERY 21 DAYS)
     Dates: start: 20231010
  11. CYCLOPHOSPHAMIDE\DOXORUBICIN\PREDNISONE\VINCRISTINE [Suspect]
     Active Substance: CYCLOPHOSPHAMIDE\DOXORUBICIN\PREDNISONE\VINCRISTINE
     Dosage: CYCLIC (EVERY 21 DAYS)
  12. CYCLOPHOSPHAMIDE\DOXORUBICIN\PREDNISONE\VINCRISTINE [Suspect]
     Active Substance: CYCLOPHOSPHAMIDE\DOXORUBICIN\PREDNISONE\VINCRISTINE
     Dosage: CYCLIC (EVERY 21 DAYS)
  13. CYCLOPHOSPHAMIDE\DOXORUBICIN\PREDNISONE\VINCRISTINE [Suspect]
     Active Substance: CYCLOPHOSPHAMIDE\DOXORUBICIN\PREDNISONE\VINCRISTINE
     Dosage: CYCLIC (EVERY 21 DAYS)
  14. CYCLOPHOSPHAMIDE\DOXORUBICIN\PREDNISONE\VINCRISTINE [Suspect]
     Active Substance: CYCLOPHOSPHAMIDE\DOXORUBICIN\PREDNISONE\VINCRISTINE
     Dosage: CYCLIC (EVERY 21 DAYS)
     Dates: start: 20240102
  15. CYCLOPHOSPHAMIDE [Suspect]
     Active Substance: CYCLOPHOSPHAMIDE
     Indication: Mantle cell lymphoma stage IV
     Dosage: R-CHOP IMMUNOCHEMOTHERAPY
     Route: 065
     Dates: start: 20230919, end: 20240102
  16. CYCLOPHOSPHAMIDE [Suspect]
     Active Substance: CYCLOPHOSPHAMIDE
     Indication: Leukaemic lymphoma
     Dosage: SECOND CYCLE OF R-CHOP IMMUNOCHEMOTHERAPY
     Route: 065
     Dates: start: 20231010
  17. CYCLOPHOSPHAMIDE [Suspect]
     Active Substance: CYCLOPHOSPHAMIDE
     Indication: Leukaemia
     Dosage: UNK
     Route: 065
     Dates: start: 20230919
  18. CYCLOPHOSPHAMIDE [Suspect]
     Active Substance: CYCLOPHOSPHAMIDE
     Dosage: UNK
     Route: 065
     Dates: start: 20231010
  19. CYCLOPHOSPHAMIDE [Suspect]
     Active Substance: CYCLOPHOSPHAMIDE
     Dosage: LAST CYCLE RCHOP IMMUNOCHEMOTHERAPY (6 CYCLES OF RCHOP IMMUNOCHEMOTHERAPY AT 21-DAY INTERVALS)
     Route: 065
     Dates: start: 20240102, end: 20240102
  20. DOXORUBICIN [Suspect]
     Active Substance: DOXORUBICIN
     Indication: Mantle cell lymphoma stage IV
     Dosage: R-CHOP IMMUNOCHEMOTHERAPY
     Route: 065
     Dates: start: 20230919, end: 20240102
  21. DOXORUBICIN [Suspect]
     Active Substance: DOXORUBICIN
     Indication: Leukaemic lymphoma
     Dosage: SECOND CYCLE OF R-CHOP IMMUNOCHEMOTHERAPY (PREVIOUSLY SECOND CYCLE)
     Route: 065
     Dates: start: 20231010, end: 20240102
  22. DOXORUBICIN [Suspect]
     Active Substance: DOXORUBICIN
     Indication: Leukaemia
     Dosage: UNK
     Route: 065
     Dates: start: 20230919
  23. DOXORUBICIN [Suspect]
     Active Substance: DOXORUBICIN
     Dosage: UNK
     Route: 065
     Dates: start: 20231010
  24. DOXORUBICIN [Suspect]
     Active Substance: DOXORUBICIN
     Dosage: LAST CYCLE RCHOP IMMUNOCHEMOTHERAPY (6 CYCLES OF RCHOP IMMUNOCHEMOTHERAPY AT 21-DAY INTERVALS)
     Route: 065
     Dates: start: 20240102, end: 20240102
  25. VINCRISTINE [Suspect]
     Active Substance: VINCRISTINE
     Indication: Mantle cell lymphoma stage IV
     Dosage: R-CHOP IMMUNOCHEMOTHERAPY
     Route: 065
     Dates: start: 20230919, end: 20240102
  26. VINCRISTINE [Suspect]
     Active Substance: VINCRISTINE
     Indication: Leukaemic lymphoma
     Dosage: SECOND CYCLE OF R-CHOP IMMUNOCHEMOTHERAPY
     Route: 065
     Dates: start: 20231010, end: 20240102
  27. VINCRISTINE [Suspect]
     Active Substance: VINCRISTINE
     Indication: Leukaemia
     Dosage: UNK
     Route: 065
     Dates: start: 20230919
  28. VINCRISTINE [Suspect]
     Active Substance: VINCRISTINE
     Dosage: UNK
     Route: 065
     Dates: start: 20231010
  29. VINCRISTINE [Suspect]
     Active Substance: VINCRISTINE
     Dosage: LAST CYCLE RCHOP IMMUNOCHEMOTHERAPY (6 CYCLES OF RCHOP IMMUNOCHEMOTHERAPY AT 21-DAY INTERVALS)
     Route: 065
     Dates: start: 20240102, end: 20240102
  30. PREDNISONE [Suspect]
     Active Substance: PREDNISONE
     Indication: Mantle cell lymphoma stage IV
     Dosage: R-CHOP IMMUNOCHEMOTHERAPY
     Route: 065
     Dates: start: 20230919, end: 20240102
  31. PREDNISONE [Suspect]
     Active Substance: PREDNISONE
     Indication: Leukaemic lymphoma
     Dosage: SECOND CYCLE OF R-CHOP IMMUNOCHEMOTHERAPY
     Route: 065
     Dates: start: 20231010, end: 20240102
  32. PREDNISONE [Suspect]
     Active Substance: PREDNISONE
     Indication: Leukaemia
     Dosage: UNK
     Route: 065
     Dates: start: 20230919
  33. PREDNISONE [Suspect]
     Active Substance: PREDNISONE
     Dosage: UNK
     Route: 065
     Dates: start: 20231010
  34. PREDNISONE [Suspect]
     Active Substance: PREDNISONE
     Dosage: LAST CYCLE RCHOP IMMUNOCHEMOTHERAPY (6 CYCLES OF RCHOP IMMUNOCHEMOTHERAPY AT 21-DAY INTERVALS)
     Route: 065
     Dates: start: 20240102, end: 20240102
  35. FILGRASTIM [Concomitant]
     Active Substance: FILGRASTIM
     Indication: Neutrophil count normal
     Dosage: UNK
     Dates: start: 20230919
  36. FILGRASTIM [Concomitant]
     Active Substance: FILGRASTIM
     Indication: Prophylaxis
     Dosage: UNK
     Route: 065
  37. FILGRASTIM [Concomitant]
     Active Substance: FILGRASTIM
     Indication: Neutropenia
  38. PEGFILGRASTIM [Concomitant]
     Active Substance: PEGFILGRASTIM
     Indication: Neutrophil count normal
     Dosage: PEGYLATED GRANULOCYTE GROWTH FACTOR APPLIED AFTER ADMINISTRATION
     Route: 061
     Dates: start: 20231010
  39. PEGFILGRASTIM [Concomitant]
     Active Substance: PEGFILGRASTIM
     Indication: Prophylaxis
     Dosage: UNK
     Route: 065
  40. AMIKACIN [Concomitant]
     Active Substance: AMIKACIN
     Indication: Antibiotic prophylaxis
     Route: 065
  41. AMIKACIN [Concomitant]
     Active Substance: AMIKACIN
     Indication: Evidence based treatment
  42. AMIKACIN [Concomitant]
     Active Substance: AMIKACIN
     Indication: Neutropenia
  43. FOSFOMYCIN [Concomitant]
     Active Substance: FOSFOMYCIN
     Indication: Antibiotic prophylaxis
     Route: 065
  44. FOSFOMYCIN [Concomitant]
     Active Substance: FOSFOMYCIN
     Indication: Neutropenia
  45. FOSFOMYCIN [Concomitant]
     Active Substance: FOSFOMYCIN
     Indication: Evidence based treatment
  46. FOSFOMYCIN [Concomitant]
     Active Substance: FOSFOMYCIN
     Indication: Enterococcal infection
  47. ISAVUCONAZOLE [Concomitant]
     Active Substance: ISAVUCONAZOLE
     Indication: Evidence based treatment
     Dosage: 200 MG, EVERY 8 HOURS
     Route: 065
  48. ISAVUCONAZOLE [Concomitant]
     Active Substance: ISAVUCONAZOLE
     Dosage: 200 MG, EVERY 1 DAY
     Route: 065
  49. ISAVUCONAZOLE [Concomitant]
     Active Substance: ISAVUCONAZOLE
     Dosage: 200 MG ONCE DAILY, CLASSIC REGIMEN
     Route: 065
  50. ISAVUCONAZOLE [Concomitant]
     Active Substance: ISAVUCONAZOLE
     Dosage: 6 DOSES OF 200 MG EVERY 8 HOURS, CLASSIC REGIMEN
     Route: 065
  51. ISAVUCONAZOLE [Concomitant]
     Active Substance: ISAVUCONAZOLE
     Dosage: STARTED THERAPY IN THE CLASSIC REGIMEN
     Route: 065
  52. CLARITHROMYCIN [Concomitant]
     Active Substance: CLARITHROMYCIN
     Indication: Bronchitis
     Dosage: UNK
     Route: 065
  53. MOXIFLOXACIN [Concomitant]
     Active Substance: MOXIFLOXACIN
     Indication: Bronchitis
     Dosage: UNK
     Route: 065
  54. REMDESIVIR [Concomitant]
     Active Substance: REMDESIVIR
     Indication: Neutropenia
     Dosage: UNK
  55. REMDESIVIR [Concomitant]
     Active Substance: REMDESIVIR
     Indication: COVID-19
     Dosage: ADMINISTERED FOR 5 DAYS
     Route: 065
  56. PIPERACILLIN AND TAZOBACTAM [Concomitant]
     Active Substance: PIPERACILLIN SODIUM\TAZOBACTAM SODIUM
     Indication: Evidence based treatment
     Dosage: UNK
     Route: 065
  57. PIPERACILLIN AND TAZOBACTAM [Concomitant]
     Active Substance: PIPERACILLIN SODIUM\TAZOBACTAM SODIUM
     Indication: Neutropenia
  58. FLUCONAZOLE [Concomitant]
     Active Substance: FLUCONAZOLE
     Indication: Evidence based treatment
     Dosage: CONTINUED
     Route: 065
  59. FLUCONAZOLE [Concomitant]
     Active Substance: FLUCONAZOLE
     Indication: Neutropenia
  60. IMMUNE GLOBULIN NOS [Concomitant]
     Active Substance: IMMUNE GLOBULIN NOS
     Indication: Secondary immunodeficiency
     Dosage: IMMUNOGLOBULIN SUBSTITUTION WAS ALSO INITIATED
     Route: 065
  61. VORICONAZOLE [Concomitant]
     Active Substance: VORICONAZOLE
     Indication: Evidence based treatment
     Dosage: UNK
     Route: 065
  62. MEROPENEM [Concomitant]
     Active Substance: MEROPENEM
     Indication: Evidence based treatment
     Dosage: UNK
     Route: 065
  63. MEROPENEM [Concomitant]
     Active Substance: MEROPENEM
     Indication: Antibiotic therapy
  64. VANCOMYCIN [Concomitant]
     Active Substance: VANCOMYCIN
     Indication: Evidence based treatment
     Dosage: UNK
     Route: 065
  65. VANCOMYCIN [Concomitant]
     Active Substance: VANCOMYCIN
     Indication: Antibiotic therapy
  66. LINEZOLID [Concomitant]
     Active Substance: LINEZOLID
     Indication: Evidence based treatment
     Dosage: UNK
     Route: 065
  67. LINEZOLID [Concomitant]
     Active Substance: LINEZOLID
     Indication: Antibiotic therapy

REACTIONS (12)
  - Haemoptysis [Recovered/Resolved]
  - Neutropenia [Recovering/Resolving]
  - Blood glucose fluctuation [Recovered/Resolved]
  - Dyspnoea at rest [Recovered/Resolved]
  - Thrombocytopenia [Recovered/Resolved]
  - Aspergillus infection [Recovering/Resolving]
  - Mucormycosis [Recovering/Resolving]
  - Pyrexia [Unknown]
  - Cough [Recovered/Resolved]
  - Chills [Unknown]
  - Enterococcal infection [Recovering/Resolving]
  - Drug effective for unapproved indication [Unknown]

NARRATIVE: CASE EVENT DATE: 20230923
